FAERS Safety Report 20198768 (Version 5)
Quarter: 2022Q1

REPORT INFORMATION
  Report Type: Report from Study
  Country: JP (occurrence: JP)
  Receive Date: 20211217
  Receipt Date: 20220125
  Transmission Date: 20220424
  Serious: Yes (Hospitalization, Other)
  Sender: FDA-Public Use
  Company Number: JP-ASTELLAS-2021JP017630

PATIENT
  Age: 63 Year
  Sex: Male
  Weight: 56 kg

DRUGS (7)
  1. ENFORTUMAB VEDOTIN [Suspect]
     Active Substance: ENFORTUMAB VEDOTIN
     Indication: Ureteric cancer
     Dosage: 1.25 MG/KG, ONCE WEEKLY ADMINISTRATION OF 3 WEEKS, INTERRUPTION OF 1 WEEK
     Route: 065
     Dates: start: 20210825, end: 20211124
  2. LEVOTHYROXINE SODIUM [Concomitant]
     Active Substance: LEVOTHYROXINE SODIUM
     Indication: Hypothyroidism
     Dosage: 125 ?G/DAY, UNKNOWN FREQ.
     Route: 048
     Dates: start: 20201209
  3. CALONAL [Concomitant]
     Active Substance: ACETAMINOPHEN
     Indication: Pyrexia
     Route: 048
     Dates: start: 20210728
  4. CALONAL [Concomitant]
     Active Substance: ACETAMINOPHEN
     Indication: Pain in extremity
     Dosage: UNK UNK, UNKNOWN FREQ.
     Route: 048
     Dates: start: 20211201
  5. EPINASTINE HYDROCHLORIDE [Concomitant]
     Active Substance: EPINASTINE HYDROCHLORIDE
     Indication: Papule
     Dosage: UNK UNK, UNKNOWN FREQ.
     Route: 065
     Dates: start: 20210908
  6. KETOPROFEN [Concomitant]
     Active Substance: KETOPROFEN
     Indication: Pain in extremity
     Dosage: 1 SHEET AT A TIME
     Route: 065
     Dates: start: 20211110
  7. TRANEXAMIC ACID [Concomitant]
     Active Substance: TRANEXAMIC ACID
     Indication: Haematuria
     Route: 048
     Dates: start: 20211203, end: 20211212

REACTIONS (9)
  - Papule [Recovered/Resolved]
  - Deep vein thrombosis [Recovering/Resolving]
  - Abdominal discomfort [Recovered/Resolved]
  - Malaise [Recovered/Resolved]
  - Taste disorder [Recovered/Resolved]
  - Fatigue [Recovered/Resolved]
  - Peripheral sensory neuropathy [Recovered/Resolved]
  - Alopecia [Recovering/Resolving]
  - Pyrexia [Not Recovered/Not Resolved]

NARRATIVE: CASE EVENT DATE: 20210908
